FAERS Safety Report 9511760 (Version 1)
Quarter: 2013Q1

REPORT INFORMATION
  Report Type: Spontaneous
  Country: US (occurrence: None)
  Receive Date: 20130305
  Receipt Date: 20130305
  Transmission Date: 20140127
  Serious: Yes (Hospitalization)
  Sender: FDA-Public Use
  Company Number: 163-21880-12052108

PATIENT
  Age: 67 Year
  Sex: Female
  Weight: 99.79 kg

DRUGS (9)
  1. REVLIMID [Suspect]
     Indication: PLASMA CELL MYELOMA
     Dosage: 25 MG, 21/7, PO
     Route: 048
     Dates: start: 201204
  2. LORATIDINE (LORATIDINE) (UNKNOWN) [Concomitant]
  3. FLUCONAZOLE (FLUCONAZOLE) (UNKNOWN) [Concomitant]
  4. AMLODIPINE (AMLODIPINE) (UNKNOWN) [Concomitant]
  5. DIVALPROEX (VALPROATE SEMISODIUM) (UNKNOWN) [Concomitant]
  6. QUINAPRIL/HCTZ (GEZOR) (UNKNOWN) [Concomitant]
  7. ASA (ACETYLSALICYLIC ACID) (UNKNOWN) [Concomitant]
  8. TXS (OTHER THERAPEUTIC PRODUCTS) (UNKNOWN) [Concomitant]
  9. OXYBUTYNIN (OXYBUTYNIN) (UNKNOWN) [Concomitant]

REACTIONS (1)
  - Pulmonary embolism [None]
